FAERS Safety Report 4285457-1 (Version None)
Quarter: 2004Q1

REPORT INFORMATION
  Report Type: 
  Country: None (occurrence: None)
  Receive Date: 20040202
  Receipt Date: 20031027
  Transmission Date: 20041129
  Serious: Yes (Hospitalization)
  Sender: FDA-Public Use
  Company Number: 2003183730GB

PATIENT
  Age: 67 Year
  Sex: Male

DRUGS (2)
  1. ARTHROTEC [Suspect]
     Indication: ARTHRALGIA
     Dosage: 50 MG , QD ORAL
     Route: 048
     Dates: start: 19930101, end: 20030901
  2. ASPIRIN [Concomitant]

REACTIONS (3)
  - ANAEMIA [None]
  - CIRCULATORY COLLAPSE [None]
  - GASTROINTESTINAL ULCER [None]
